FAERS Safety Report 4472726-5 (Version None)
Quarter: 2004Q4

REPORT INFORMATION
  Report Type: 
  Country: None (occurrence: None)
  Receive Date: 20041013
  Receipt Date: 20040917
  Transmission Date: 20050328
  Serious: Yes (Other)
  Sender: FDA-Public Use
  Company Number: PHFR2004GB03537

PATIENT
  Age: 53 Year
  Sex: Male

DRUGS (4)
  1. CLOZARIL [Suspect]
     Indication: SCHIZOPHRENIA
     Dosage: 300MG/DAY
     Route: 048
     Dates: start: 20040820, end: 20040928
  2. RISPERIDONE [Concomitant]
     Dosage: 1MG/DAY
     Route: 048
     Dates: start: 20040915, end: 20040917
  3. RISPERIDONE [Concomitant]
     Dosage: 2MG/DAY
     Route: 048
     Dates: start: 20040908, end: 20040917
  4. CITALOPRAM [Concomitant]
     Indication: DEPRESSION
     Dosage: 30MG/DAY
     Route: 048
     Dates: start: 20040909, end: 20040930

REACTIONS (12)
  - ABDOMINAL PAIN [None]
  - ASPARTATE AMINOTRANSFERASE INCREASED [None]
  - BLOOD ALKALINE PHOSPHATASE INCREASED [None]
  - BLOOD CREATINE PHOSPHOKINASE INCREASED [None]
  - BLOOD TEST ABNORMAL [None]
  - CHOLECYSTITIS [None]
  - CHOLELITHIASIS [None]
  - GAMMA-GLUTAMYLTRANSFERASE INCREASED [None]
  - MALAISE [None]
  - MYALGIA [None]
  - PYREXIA [None]
  - VIRAL INFECTION [None]
